FAERS Safety Report 24029656 (Version 1)
Quarter: 2024Q2

REPORT INFORMATION
  Report Type: Spontaneous
  Country: US (occurrence: US)
  Receive Date: 20240628
  Receipt Date: 20240628
  Transmission Date: 20240716
  Serious: Yes (Death, Other)
  Sender: FDA-Public Use
  Company Number: US-009507513-2406USA007049

PATIENT
  Age: 38 Year
  Sex: Male

DRUGS (1)
  1. BRIDION [Suspect]
     Active Substance: SUGAMMADEX
     Indication: Muscle relaxant therapy
     Dosage: 200 MILLIGRAM
     Route: 042
     Dates: start: 20240617

REACTIONS (4)
  - Cardiac arrest [Fatal]
  - Ventricular fibrillation [Unknown]
  - Bradycardia [Unknown]
  - Incorrect dose administered [Unknown]

NARRATIVE: CASE EVENT DATE: 20240617
